FAERS Safety Report 13769638 (Version 3)
Quarter: 2018Q2

REPORT INFORMATION
  Report Type: Report from Study
  Country: US (occurrence: US)
  Receive Date: 20170719
  Receipt Date: 20180620
  Transmission Date: 20180711
  Serious: Yes (Other)
  Sender: FDA-Public Use
  Company Number: US-INCYTE CORPORATION-2017IN004576

PATIENT

DRUGS (1)
  1. JAKAFI [Suspect]
     Active Substance: RUXOLITINIB
     Indication: MYELOFIBROSIS
     Dosage: UNK
     Route: 048
     Dates: start: 2009

REACTIONS (7)
  - Contusion [Unknown]
  - Fatigue [Unknown]
  - Blood count abnormal [Unknown]
  - Disturbance in attention [Unknown]
  - Feeling abnormal [Unknown]
  - Dementia [Unknown]
  - Splenomegaly [Unknown]
